FAERS Safety Report 8557739-6 (Version None)
Quarter: 2012Q3

REPORT INFORMATION
  Report Type: 
  Country: None (occurrence: None)
  Receive Date: 20120801
  Receipt Date: 20110107
  Transmission Date: 20120928
  Serious: Yes (Hospitalization, Other)
  Sender: FDA-Public Use
  Company Number: US-BAYER-2011-004031

PATIENT
  Age: 50 Year
  Sex: Male

DRUGS (2)
  1. MUCINEX [Concomitant]
  2. AVELOX [Suspect]
     Dosage: 400 MG, ONCE
     Route: 048

REACTIONS (1)
  - GRAND MAL CONVULSION [None]
